FAERS Safety Report 6136782-0 (Version None)
Quarter: 2009Q1

REPORT INFORMATION
  Report Type: 
  Country: None (occurrence: None)
  Receive Date: 20090330
  Receipt Date: 20090321
  Transmission Date: 20090719
  Serious: Yes (Other)
  Sender: FDA-Public Use
  Company Number: CA-ABBOTT-09P-028-0564011-00

PATIENT
  Age: 10 Year
  Sex: Male

DRUGS (10)
  1. CYCLOSPORINE [Suspect]
     Indication: IMMUNOSUPPRESSANT DRUG THERAPY
  2. RANDOM DONOR PLATELET TRANSFUSIONS [Concomitant]
     Indication: SEPTIC SHOCK
     Dosage: NOT REPORTED
  3. ATGAM [Concomitant]
     Indication: IMMUNOSUPPRESSANT DRUG THERAPY
  4. PREDNISONE [Concomitant]
     Indication: IMMUNOSUPPRESSANT DRUG THERAPY
  5. PREDNISONE [Concomitant]
     Dosage: TAPERED AFTER 7 DAYS TO STOP OVER A PERIOD OF 14 DAYS
  6. AMLODIPINE BESYLATE [Concomitant]
     Indication: DRUG USE FOR UNKNOWN INDICATION
     Dosage: NOT REPORTED
  7. PCP [Concomitant]
     Indication: PROPHYLAXIS
     Dosage: NOT REPORTED
  8. PENTAMIDINE [Concomitant]
     Indication: DRUG USE FOR UNKNOWN INDICATION
     Dosage: NOT REPORTED
     Route: 055
  9. TACROLIMUS [Concomitant]
     Indication: DRUG USE FOR UNKNOWN INDICATION
  10. TACROLIMUS [Concomitant]

REACTIONS (3)
  - GINGIVAL HYPERPLASIA [None]
  - HAEMOLYTIC ANAEMIA [None]
  - OPERATIVE HAEMORRHAGE [None]
